APPROVED DRUG PRODUCT: LAMIVUDINE, NEVIRAPINE AND ZIDOVUDINE
Active Ingredient: LAMIVUDINE; NEVIRAPINE; ZIDOVUDINE
Strength: 150MG;200MG;300MG
Dosage Form/Route: TABLET;ORAL
Application: N205626 | Product #001
Applicant: MICRO LABS LTD
Approved: Aug 13, 2018 | RLD: Yes | RS: No | Type: DISCN